FAERS Safety Report 18180975 (Version 1)
Quarter: 2020Q3

REPORT INFORMATION
  Report Type: Spontaneous
  Country: US (occurrence: US)
  Receive Date: 20200821
  Receipt Date: 20200821
  Transmission Date: 20201103
  Serious: Yes (Other)
  Sender: FDA-Public Use
  Company Number: None

PATIENT
  Age: 70 Year
  Sex: Male
  Weight: 93.6 kg

DRUGS (2)
  1. KCENTRA [Suspect]
     Active Substance: COAGULATION FACTOR IX HUMAN\COAGULATION FACTOR VII HUMAN\COAGULATION FACTOR X HUMAN\PROTEIN C\PROTEIN S HUMAN\PROTHROMBIN
     Indication: PROCOAGULANT THERAPY
     Dosage: ?          OTHER FREQUENCY:ONCE;?
     Route: 040
     Dates: start: 20200809, end: 20200809
  2. XARELTO [Suspect]
     Active Substance: RIVAROXABAN

REACTIONS (8)
  - Rectal haemorrhage [None]
  - Confusional state [None]
  - Lower gastrointestinal haemorrhage [None]
  - Thrombosis [None]
  - Cerebrovascular accident [None]
  - Haematochezia [None]
  - Visual impairment [None]
  - Speech disorder [None]

NARRATIVE: CASE EVENT DATE: 20200809
